FAERS Safety Report 6918215-7 (Version None)
Quarter: 2010Q3

REPORT INFORMATION
  Report Type: 
  Country: None (occurrence: None)
  Receive Date: 20100806
  Receipt Date: 20100727
  Transmission Date: 20110219
  Serious: Yes (Life-Threatening, Hospitalization)
  Sender: FDA-Public Use
  Company Number: WAES 1003USA00477

PATIENT
  Age: 17 Year
  Sex: Female
  Weight: 69.8539 kg

DRUGS (6)
  1. ISENTRESS [Suspect]
     Indication: HIV INFECTION
     Dosage: 400 MG/BID/PO
     Route: 048
     Dates: start: 20080208, end: 20090114
  2. VANCOMYCIN [Suspect]
     Indication: PYREXIA
     Dosage: QH8/IV
     Route: 042
     Dates: end: 20100512
  3. CEFTAZIDIME [Suspect]
     Indication: PNEUMONIA
     Dosage: Q8H/IV
     Route: 042
     Dates: end: 20100512
  4. VALTREX [Suspect]
     Indication: PROPHYLAXIS
     Dosage: BID/PO
     Route: 048
     Dates: end: 20100512
  5. ENALAPRIL MALEATE UNK [Suspect]
     Indication: CARDIOMYOPATHY
     Dosage: BID/PO
     Route: 048
     Dates: end: 20100512
  6. PENTAMIDINE ISETHIONATE [Concomitant]

REACTIONS (34)
  - AIDS ENCEPHALOPATHY [None]
  - ALOPECIA [None]
  - ANAEMIA [None]
  - BLOOD ALBUMIN DECREASED [None]
  - CARDIOMYOPATHY [None]
  - DEHYDRATION [None]
  - DEPRESSION [None]
  - DIABETIC KETOACIDOSIS [None]
  - DIARRHOEA [None]
  - DRUG TOXICITY [None]
  - ELECTROCARDIOGRAM QT PROLONGED [None]
  - HAEMOLYTIC URAEMIC SYNDROME [None]
  - HERPES ZOSTER [None]
  - HYPOKALAEMIA [None]
  - HYPONATRAEMIA [None]
  - METABOLIC ACIDOSIS [None]
  - METAPNEUMOVIRUS INFECTION [None]
  - NYSTAGMUS [None]
  - OPPORTUNISTIC INFECTION [None]
  - OTITIS MEDIA CHRONIC [None]
  - PANCREATITIS [None]
  - PNEUMONIA [None]
  - RASH MACULO-PAPULAR [None]
  - RASH PRURITIC [None]
  - RENAL CYST [None]
  - RENAL FAILURE ACUTE [None]
  - RHINOVIRUS INFECTION [None]
  - SEPSIS [None]
  - TACHYCARDIA [None]
  - TACHYPNOEA [None]
  - THROMBOTIC THROMBOCYTOPENIC PURPURA [None]
  - TREATMENT NONCOMPLIANCE [None]
  - TYMPANIC MEMBRANE PERFORATION [None]
  - TYPE 2 DIABETES MELLITUS [None]
